FAERS Safety Report 16969116 (Version 1)
Quarter: 2019Q4

REPORT INFORMATION
  Report Type: Spontaneous
  Country: JP (occurrence: JP)
  Receive Date: 20191029
  Receipt Date: 20191029
  Transmission Date: 20200122
  Serious: Yes (Other)
  Sender: FDA-Public Use
  Company Number: JP-TEVA-2019-JP-1128785

PATIENT
  Age: 71 Year
  Sex: Female
  Weight: 52.8 kg

DRUGS (7)
  1. LEUCOVORIN. [Suspect]
     Active Substance: LEUCOVORIN
     Indication: COLORECTAL CANCER METASTATIC
     Dosage: 200 MG/M2; PART OF MFOLFOX-6 REGIMEN
     Route: 065
     Dates: start: 201805
  2. 5-FLUOROURACIL [Suspect]
     Active Substance: FLUOROURACIL
     Indication: COLORECTAL CANCER METASTATIC
     Dosage: BOLUS; 400 MG/M2; PART OF MFOLFOX-6 REGIMEN
     Route: 065
     Dates: start: 201805
  3. OXALIPLATIN. [Suspect]
     Active Substance: OXALIPLATIN
     Indication: COLORECTAL CANCER METASTATIC
     Dosage: 60 MG/M2; PART OF MFOLFOX-6 REGIMEN
     Route: 065
     Dates: start: 201805
  4. BEVACIZUMAB. [Suspect]
     Active Substance: BEVACIZUMAB
     Indication: COLORECTAL CANCER METASTATIC
     Dosage: 46 HOURS INJECTION; 5 MG/KG
     Route: 065
     Dates: start: 201805
  5. 5-FLUOROURACIL [Suspect]
     Active Substance: FLUOROURACIL
     Dosage: 46 HOURS INJECTION; 2400 MG/M2
     Route: 065
     Dates: start: 201805
  6. 5-FLUOROURACIL [Suspect]
     Active Substance: FLUOROURACIL
     Dosage: BOLUS; 320 MG/M2
     Route: 065
  7. 5-FLUOROURACIL [Suspect]
     Active Substance: FLUOROURACIL
     Dosage: 46 HOURS INJECTION; 1920 MG/M2
     Route: 065

REACTIONS (4)
  - Fatigue [Unknown]
  - Thrombocytopenia [Unknown]
  - Bone marrow failure [Unknown]
  - Neutropenia [Unknown]
